FAERS Safety Report 5511032-4 (Version None)
Quarter: 2007Q4

REPORT INFORMATION
  Report Type: 
  Country: None (occurrence: None)
  Receive Date: 20071109
  Receipt Date: 20071031
  Transmission Date: 20080405
  Serious: Yes (Hospitalization, Other)
  Sender: FDA-Public Use
  Company Number: US-JNJFOC-20071100417

PATIENT
  Sex: Male
  Weight: 109.77 kg

DRUGS (10)
  1. FENTANYL TRANSDERMAL SYSTEM [Suspect]
     Indication: HEPATIC CIRRHOSIS
     Route: 062
  2. FENTANYL TRANSDERMAL SYSTEM [Suspect]
     Indication: HEPATIC CIRRHOSIS
     Route: 062
  3. ALBUTEROL [Concomitant]
     Indication: RESPIRATORY DISORDER
     Dosage: 90UG, 2 PUFFS FOUR TIMES DAILY
     Route: 055
  4. SYNTHROID [Concomitant]
     Indication: THYROID DISORDER
     Route: 048
  5. FOLIC ACID [Concomitant]
     Indication: MEDICAL DIET
     Route: 048
  6. THIAMINE [Concomitant]
     Indication: VITAMIN SUPPLEMENTATION
     Route: 048
  7. LASIX [Concomitant]
     Indication: FLUID RETENTION
     Route: 048
  8. LACTULOSE [Concomitant]
     Indication: CONSTIPATION
     Dosage: 10G/15ML
     Route: 048
  9. SPIRONOLACTONE [Concomitant]
     Indication: FLUID RETENTION
     Dosage: 3X 150MG TABLETS
     Route: 048
  10. OXY IR [Concomitant]
     Indication: PAIN
     Route: 048

REACTIONS (11)
  - ADVERSE DRUG REACTION [None]
  - ATRIOVENTRICULAR BLOCK [None]
  - BIPOLAR DISORDER [None]
  - CHEST PAIN [None]
  - CHRONIC OBSTRUCTIVE PULMONARY DISEASE [None]
  - DIABETES MELLITUS [None]
  - HOSPITALISATION [None]
  - INCORRECT DRUG ADMINISTRATION DURATION [None]
  - INSOMNIA [None]
  - PROSTATOMEGALY [None]
  - WRONG TECHNIQUE IN DRUG USAGE PROCESS [None]
